FAERS Safety Report 9206900 (Version 1)
Quarter: 2013Q1

REPORT INFORMATION
  Report Type: Spontaneous
  Country: US (occurrence: None)
  Receive Date: 20120802
  Receipt Date: 20120802
  Transmission Date: 20140127
  Serious: Yes (Other)
  Sender: FDA-Public Use
  Company Number: 12-021

PATIENT
  Sex: Female

DRUGS (1)
  1. METHADONE [Suspect]
     Dates: start: 2011

REACTIONS (2)
  - Staphylococcal infection [None]
  - Hypersensitivity [None]
